FAERS Safety Report 9901763 (Version 2)
Quarter: 2014Q1

REPORT INFORMATION
  Report Type: Spontaneous
  Country: US (occurrence: US)
  Receive Date: 20140217
  Receipt Date: 20140217
  Transmission Date: 20141002
  Serious: No
  Sender: FDA-Public Use
  Company Number: US-GILEAD-2011-0042301

PATIENT
  Age: 17 Year
  Sex: Female

DRUGS (5)
  1. LETAIRIS [Suspect]
     Indication: PULMONARY HYPERTENSION
     Route: 048
     Dates: start: 20110524
  2. LETAIRIS [Suspect]
     Indication: HEART DISEASE CONGENITAL
  3. PROSTACYCLIN [Suspect]
  4. VELETRI [Concomitant]
  5. ADCIRCA [Concomitant]

REACTIONS (4)
  - Asthenia [Unknown]
  - Diarrhoea [Unknown]
  - Nausea [Unknown]
  - Headache [Unknown]
